FAERS Safety Report 5493973-X (Version None)
Quarter: 2007Q4

REPORT INFORMATION
  Report Type: 
  Country: None (occurrence: None)
  Receive Date: 20071023
  Receipt Date: 20071011
  Transmission Date: 20080405
  Serious: Yes (Other)
  Sender: FDA-Public Use
  Company Number: US-PFIZER INC-2007015103

PATIENT
  Sex: Male
  Weight: 72.6 kg

DRUGS (3)
  1. CHANTIX [Suspect]
     Indication: EX-SMOKER
     Dosage: FREQ:TWICE DAILY
     Dates: start: 20061227, end: 20070207
  2. ZOCOR [Concomitant]
  3. NOVOLOG [Concomitant]

REACTIONS (5)
  - BLOOD GLUCOSE INCREASED [None]
  - DYSPEPSIA [None]
  - EARLY MORNING AWAKENING [None]
  - NAUSEA [None]
  - POOR QUALITY SLEEP [None]
